FAERS Safety Report 23419052 (Version 3)
Quarter: 2024Q1

REPORT INFORMATION
  Report Type: Spontaneous
  Country: DE (occurrence: DE)
  Receive Date: 20240118
  Receipt Date: 20240201
  Transmission Date: 20240410
  Serious: Yes (Death, Life-Threatening, Hospitalization)
  Sender: FDA-Public Use
  Company Number: DE-GILEAD-2023-0656580

PATIENT
  Sex: Female
  Weight: 56.6 kg

DRUGS (32)
  1. PEMETREXED [Suspect]
     Active Substance: PEMETREXED
     Indication: Non-small cell lung cancer metastatic
     Dosage: 950 MG, UNKNOWN
     Route: 042
  2. PEMETREXED [Suspect]
     Active Substance: PEMETREXED
     Dosage: 950 MG, UNKNOWN
     Route: 042
  3. ZIMBERELIMAB [Suspect]
     Active Substance: ZIMBERELIMAB
     Indication: Non-small cell lung cancer metastatic
     Dosage: UNK, UNKNOWN
     Route: 065
  4. PEMBROLIZUMAB [Suspect]
     Active Substance: PEMBROLIZUMAB
     Indication: Non-small cell lung cancer metastatic
     Dosage: 200 MG, UNKNOWN
     Route: 042
  5. PEMBROLIZUMAB [Suspect]
     Active Substance: PEMBROLIZUMAB
     Dosage: 200 MG, UNKNOWN
     Route: 042
  6. CARBOPLATIN [Suspect]
     Active Substance: CARBOPLATIN
     Indication: Non-small cell lung cancer metastatic
     Dosage: 551 MG, UNKNOWN
     Route: 042
  7. CARBOPLATIN [Suspect]
     Active Substance: CARBOPLATIN
     Dosage: 551 MG, UNKNOWN
     Route: 042
  8. ATORVASTATIN [Concomitant]
     Active Substance: ATORVASTATIN
     Indication: Prophylaxis
     Dosage: UNK, UNKNOWN
     Route: 048
     Dates: start: 2011
  9. PANTOPRAZOLE [Concomitant]
     Active Substance: PANTOPRAZOLE
     Indication: Prophylaxis
     Dosage: UNK, UNKNOWN
     Route: 048
     Dates: start: 201111
  10. DEXAMETHASONE [Concomitant]
     Active Substance: DEXAMETHASONE
     Indication: Premedication
     Dosage: UNK, UNKNOWN
     Route: 048
     Dates: start: 20231227, end: 20231229
  11. LEUCOVORIN [Concomitant]
     Active Substance: LEUCOVORIN\LEUCOVORIN CALCIUM
     Indication: Prophylaxis
     Dosage: UNK, UNKNOWN
     Route: 048
     Dates: start: 20231221
  12. AMINO ACIDS\DEXTROSE\ELECTROLYTES NOS\SOYBEAN OIL [Concomitant]
     Active Substance: AMINO ACIDS\DEXTROSE\ELECTROLYTES NOS\SOYBEAN OIL
     Indication: Dysphagia
     Dosage: UNK, UNKNOWN
     Route: 042
     Dates: start: 20231226
  13. CHOLECALCIFEROL [Concomitant]
     Active Substance: CHOLECALCIFEROL
     Indication: Prophylaxis
     Dosage: UNK, UNKNOWN
     Route: 048
     Dates: start: 201602
  14. SODIUM CHLORIDE [Concomitant]
     Active Substance: SODIUM CHLORIDE
     Indication: Dysphagia
     Dosage: UNK, UNKNOWN
     Route: 042
     Dates: start: 20231226
  15. NEBIVOLOL [Concomitant]
     Active Substance: NEBIVOLOL
     Indication: Hypertension
     Dosage: UNK, UNKNOWN
     Route: 048
     Dates: start: 2018
  16. CERTOPARIN SODIUM [Concomitant]
     Active Substance: CERTOPARIN SODIUM
     Indication: Atrial fibrillation
     Dosage: UNK, UNKNOWN
     Route: 058
     Dates: start: 20231227
  17. CERTOPARIN SODIUM [Concomitant]
     Active Substance: CERTOPARIN SODIUM
     Dosage: UNK, UNKNOWN
     Route: 058
     Dates: start: 20231227
  18. DORZOLAMIDE [Concomitant]
     Active Substance: DORZOLAMIDE
     Indication: Glaucoma
     Dosage: UNK UNK, UNKNOWN (AURICULAR USE)
     Route: 050
     Dates: start: 2004
  19. PIPERACILLIN [Concomitant]
     Active Substance: PIPERACILLIN
     Indication: Prophylaxis
     Dosage: UNK, UNKNOWN
     Route: 042
     Dates: start: 20231126
  20. PIPERACILLIN [Concomitant]
     Active Substance: PIPERACILLIN
     Indication: Neutropenia
     Dosage: UNK, UNKNOWN
     Route: 042
     Dates: start: 20231226, end: 20231227
  21. PIPERACILLIN [Concomitant]
     Active Substance: PIPERACILLIN
     Dosage: UNK, UNKNOWN
     Route: 042
     Dates: start: 20240107
  22. VITAMIN B12 [Concomitant]
     Active Substance: CYANOCOBALAMIN
     Indication: Prophylaxis
     Dosage: UNK, UNKNOWN
     Route: 058
     Dates: start: 20231221
  23. ONDANSETRON [Concomitant]
     Active Substance: ONDANSETRON
     Indication: Prophylaxis
     Dosage: UNK, OTHER (CYCLE 1-4)
     Route: 042
     Dates: start: 20231228
  24. MORPHINE SULFATE [Concomitant]
     Active Substance: MORPHINE SULFATE
     Indication: Dyspnoea
     Dosage: UNK, UNKNOWN
     Route: 058
     Dates: start: 20240110
  25. OXYGEN [Concomitant]
     Active Substance: OXYGEN
     Indication: Dyspnoea
     Dosage: UNK, UNKNOWN
     Route: 055
     Dates: start: 20240110
  26. POTASSIUM CHLORIDE [Concomitant]
     Active Substance: POTASSIUM CHLORIDE
     Indication: Hypokalaemia
     Dosage: UNK, UNKNOWN
     Route: 042
     Dates: start: 20240108
  27. MAGNESIUM [Concomitant]
     Active Substance: MAGNESIUM
     Indication: Atrial fibrillation
     Dosage: UNK, UNKNOWN
     Route: 042
     Dates: start: 20240109, end: 20240109
  28. TAUROLIDINE [Concomitant]
     Active Substance: TAUROLIDINE
     Indication: Systemic candida
     Dosage: UNK, UNKNOWN
     Route: 042
     Dates: start: 20240109, end: 20240109
  29. CASPOFUNGIN [Concomitant]
     Active Substance: CASPOFUNGIN
     Indication: Systemic candida
     Dosage: UNK, UNKNOWN
     Route: 042
     Dates: start: 20240109
  30. SODIUM [Concomitant]
     Active Substance: SODIUM
     Indication: Dysphagia
     Dosage: UNK, UNKNOWN
     Route: 042
     Dates: start: 20231226
  31. VITAMIN B12 [Concomitant]
     Active Substance: CYANOCOBALAMIN
     Indication: Prophylaxis
     Dosage: UNK, UNKNOWN
     Route: 058
     Dates: start: 20231221
  32. PREDNISONE [Concomitant]
     Active Substance: PREDNISONE
     Indication: Prophylaxis
     Dosage: UNK, UNKNOWN
     Route: 042
     Dates: start: 20240113

REACTIONS (6)
  - Respiratory failure [Fatal]
  - Febrile neutropenia [Recovered/Resolved]
  - Thrombocytopenia [Recovered/Resolved with Sequelae]
  - Platelet count decreased [Recovered/Resolved]
  - Renal failure [Not Recovered/Not Resolved]
  - Dysphagia [Not Recovered/Not Resolved]

NARRATIVE: CASE EVENT DATE: 20231225
